FAERS Safety Report 18241932 (Version 1)
Quarter: 2020Q3

REPORT INFORMATION
  Report Type: Spontaneous
  Country: US (occurrence: US)
  Receive Date: 20200904
  Receipt Date: 20200904
  Transmission Date: 20201103
  Serious: Yes (Other)
  Sender: FDA-Public Use
  Company Number: None

PATIENT
  Age: 74 Year
  Sex: Male

DRUGS (6)
  1. AZOR [Concomitant]
     Active Substance: AMLODIPINE BESYLATE\OLMESARTAN MEDOXOMIL
  2. REPATHA [Suspect]
     Active Substance: EVOLOCUMAB
     Indication: HYPERLIPIDAEMIA
     Dosage: QUANTITY:140 MG MILLIGRAM(S);OTHER FREQUENCY:EVERY 2 WEEKS ;?UNDER THE SKIN
     Route: 058
     Dates: start: 20200520
  3. ASPIRIN. [Concomitant]
     Active Substance: ASPIRIN
  4. FINASTERIDE. [Concomitant]
     Active Substance: FINASTERIDE
  5. LOVASTATIN. [Concomitant]
     Active Substance: LOVASTATIN
  6. TAMSULOSIN [Concomitant]
     Active Substance: TAMSULOSIN

REACTIONS (1)
  - Fatigue [None]

NARRATIVE: CASE EVENT DATE: 20200521
